FAERS Safety Report 4346783-0 (Version None)
Quarter: 2004Q1

REPORT INFORMATION
  Report Type: 
  Country: None (occurrence: None)
  Receive Date: 20040325
  Receipt Date: 20040129
  Transmission Date: 20041129
  Serious: No
  Sender: FDA-Public Use
  Company Number: USA031255207

PATIENT
  Age: 68 Year
  Sex: Female

DRUGS (3)
  1. FORTEO [Suspect]
     Dosage: 20 UG/DAY
     Dates: start: 20031208
  2. BLOOD PRESSURE MEDICATION [Concomitant]
  3. WATER PILL [Concomitant]

REACTIONS (1)
  - PAIN IN EXTREMITY [None]
